FAERS Safety Report 12397394 (Version 2)
Quarter: 2018Q1

REPORT INFORMATION
  Report Type: Spontaneous
  Country: US (occurrence: US)
  Receive Date: 20160524
  Receipt Date: 20180330
  Transmission Date: 20180508
  Serious: No
  Sender: FDA-Public Use
  Company Number: US-DRREDDYS-DRL/USA/16/0078561

PATIENT
  Sex: Female
  Weight: 49.8 kg

DRUGS (2)
  1. SUMATRIPTAN INJECTION USP, 6 MG/0.5 ML [Suspect]
     Active Substance: SUMATRIPTAN
     Indication: MIGRAINE
     Route: 058
     Dates: start: 1997
  2. ASPIRIN. [Concomitant]
     Active Substance: ASPIRIN
     Indication: MIGRAINE
     Route: 048

REACTIONS (3)
  - Injection site bruising [Recovered/Resolved]
  - Drug dose omission [Unknown]
  - Product physical issue [Unknown]
